FAERS Safety Report 8991009 (Version 1)
Quarter: 2012Q4

REPORT INFORMATION
  Report Type: Spontaneous
  Country: US (occurrence: None)
  Receive Date: 20121220
  Receipt Date: 20121220
  Transmission Date: 20130627
  Serious: Yes (Hospitalization)
  Sender: FDA-Public Use
  Company Number: 2012AP004217

PATIENT
  Age: 42 Year
  Sex: Female

DRUGS (3)
  1. LITHIUM CARBONATE CAPSULES [Suspect]
     Indication: MAJOR DEPRESSIVE DISORDER NOS
  2. VENLAFAXINE [Suspect]
  3. ANTIDEPRESSANTS [Concomitant]

REACTIONS (5)
  - Serotonin syndrome [None]
  - Depression [None]
  - Suicidal ideation [None]
  - Leukocytosis [None]
  - Blood creatine phosphokinase increased [None]
